FAERS Safety Report 21392088 (Version 2)
Quarter: 2022Q4

REPORT INFORMATION
  Report Type: Spontaneous
  Country: JP (occurrence: JP)
  Receive Date: 20220929
  Receipt Date: 20221014
  Transmission Date: 20230112
  Serious: Yes (Other)
  Sender: FDA-Public Use
  Company Number: JP-Merck Healthcare KGaA-9352771

PATIENT
  Age: 76 Year
  Sex: Male

DRUGS (6)
  1. ERBITUX [Suspect]
     Active Substance: CETUXIMAB
     Indication: Tongue neoplasm malignant stage unspecified
     Dosage: 400 MG/M2, WEEKLY (1/W)
     Route: 041
  2. ERBITUX [Suspect]
     Active Substance: CETUXIMAB
     Dosage: 250 MG/M2, WEEKLY (1/W)
     Route: 041
  3. PACLITAXEL [Suspect]
     Active Substance: PACLITAXEL
     Indication: Tongue neoplasm malignant stage unspecified
     Dosage: 100 MG/M2, UNK
     Route: 065
  4. PACLITAXEL [Suspect]
     Active Substance: PACLITAXEL
     Dosage: UNK UNK, UNKNOWN (DECREASED DOSE)
     Route: 065
  5. CARBOPLATIN [Suspect]
     Active Substance: CARBOPLATIN
     Indication: Tongue neoplasm malignant stage unspecified
     Dosage: UNK UNK, UNKNOWN (AUC 2.5)
     Route: 065
  6. CARBOPLATIN [Suspect]
     Active Substance: CARBOPLATIN
     Dosage: UNK UNK, UNKNOWN (DECREASED DOSE)
     Route: 065

REACTIONS (4)
  - Hypokalaemia [Unknown]
  - Neutropenia [Unknown]
  - Anaemia [Unknown]
  - Hypomagnesaemia [Unknown]
